FAERS Safety Report 18175319 (Version 4)
Quarter: 2020Q4

REPORT INFORMATION
  Report Type: Report from Study
  Country: US (occurrence: US)
  Receive Date: 20200820
  Receipt Date: 20201218
  Transmission Date: 20210113
  Serious: Yes (Hospitalization, Other)
  Sender: FDA-Public Use
  Company Number: US-GLAXOSMITHKLINE-US2020AMR166381

PATIENT
  Sex: Female

DRUGS (5)
  1. NIRAPARIB [Suspect]
     Active Substance: NIRAPARIB
     Indication: OVARIAN CANCER
     Dosage: 300 MG, QD
     Dates: start: 2019
  2. NIRAPARIB [Suspect]
     Active Substance: NIRAPARIB
     Dosage: 200 MG, QD
  3. NIRAPARIB [Suspect]
     Active Substance: NIRAPARIB
     Dosage: 100 MG, QD
  4. NIRAPARIB [Suspect]
     Active Substance: NIRAPARIB
     Dosage: 100 MG, QD
  5. NIRAPARIB [Suspect]
     Active Substance: NIRAPARIB
     Dosage: 100 MG, QD
     Dates: start: 20200822

REACTIONS (17)
  - Constipation [Not Recovered/Not Resolved]
  - Fatigue [Unknown]
  - Staphylococcal infection [Unknown]
  - Stomatitis [Recovering/Resolving]
  - Blood count abnormal [Recovered/Resolved]
  - Limb injury [Unknown]
  - Off label use [Unknown]
  - Swelling face [Recovering/Resolving]
  - Gait disturbance [Unknown]
  - Product dose omission issue [Unknown]
  - Lip swelling [Recovering/Resolving]
  - Dyspnoea [Unknown]
  - Candida infection [Recovering/Resolving]
  - Weight decreased [Unknown]
  - Haemorrhage [Unknown]
  - Hypertension [Recovering/Resolving]
  - Peripheral swelling [Recovering/Resolving]
